FAERS Safety Report 21385919 (Version 1)
Quarter: 2022Q3

REPORT INFORMATION
  Report Type: Spontaneous
  Country: US (occurrence: US)
  Receive Date: 20220928
  Receipt Date: 20220928
  Transmission Date: 20221027
  Serious: Yes (Death, Hospitalization, Other)
  Sender: FDA-Public Use
  Company Number: US-ALVOGEN-2022-ALVOGEN-120933

PATIENT
  Age: 68 Year
  Sex: Female
  Weight: 48 kg

DRUGS (3)
  1. VORICONAZOLE [Interacting]
     Active Substance: VORICONAZOLE
     Indication: Product used for unknown indication
     Dosage: 200 MG TAKEN ORALLY
     Route: 048
  2. APIXABAN [Interacting]
     Active Substance: APIXABAN
     Indication: Deep vein thrombosis
  3. ENOXAPARIN [Suspect]
     Active Substance: ENOXAPARIN
     Indication: Deep vein thrombosis

REACTIONS (3)
  - Deep vein thrombosis [Fatal]
  - Cardiac arrest [Fatal]
  - Drug interaction [Fatal]
